FAERS Safety Report 8300278-8 (Version None)
Quarter: 2012Q2

REPORT INFORMATION
  Report Type: 
  Country: None (occurrence: None)
  Receive Date: 20120417
  Receipt Date: 20120405
  Transmission Date: 20120825
  Serious: Yes (Other)
  Sender: FDA-Public Use
  Company Number: GGEL20120400472

PATIENT
  Age: 25 Year
  Sex: Female

DRUGS (1)
  1. NORGESTIMATE AND ETHINYL ESTRADIOL [Suspect]
     Indication: CONTRACEPTION
     Dosage: 1 IN 1 D, BY MOUTH

REACTIONS (3)
  - FATIGUE [None]
  - PREGNANCY ON ORAL CONTRACEPTIVE [None]
  - DRUG INEFFECTIVE [None]
